FAERS Safety Report 8917067 (Version 1)
Quarter: 2012Q4

REPORT INFORMATION
  Report Type: 
  Country: US (occurrence: US)
  Receive Date: 20121120
  Receipt Date: 20121120
  Transmission Date: 20130627
  Serious: Yes (Death, Hospitalization)
  Sender: FDA-Public Use
  Company Number: US-AMGEN-USASP2012072263

PATIENT
  Age: 56 Year
  Sex: Male

DRUGS (1)
  1. ENBREL [Suspect]
     Indication: PSORIASIS
     Dosage: UNK
     Dates: end: 2010

REACTIONS (10)
  - Pleural effusion [Fatal]
  - Ascites [Fatal]
  - Protein-losing gastroenteropathy [Unknown]
  - Hypoalbuminaemia [Unknown]
  - Enteritis [Unknown]
  - Diarrhoea [Unknown]
  - Retroperitoneal lymphadenopathy [Unknown]
  - Abdominal lymphadenopathy [Unknown]
  - Pneumocystis jiroveci pneumonia [Fatal]
  - Mycobacterium avium complex infection [Unknown]
